FAERS Safety Report 8960717 (Version 1)
Quarter: 2012Q4

REPORT INFORMATION
  Report Type: 
  Country: US (occurrence: US)
  Receive Date: 20121213
  Receipt Date: 20121213
  Transmission Date: 20130627
  Serious: No
  Sender: FDA-Public Use
  Company Number: US-009507513-1212USA003788

PATIENT
  Age: 39 Year
  Sex: Female
  Weight: 61.22 kg

DRUGS (2)
  1. RIBAVIRIN [Suspect]
     Indication: HEPATITIS C
     Dosage: 400 mg, qd
     Route: 048
     Dates: start: 20121111, end: 20121116
  2. PEGINTERFERON ALFA-2A [Suspect]
     Indication: HEPATITIS C
     Dosage: 180 Microgram, qw
     Route: 030
     Dates: start: 20121109, end: 20121116

REACTIONS (1)
  - Rash [Recovered/Resolved]
